FAERS Safety Report 16079072 (Version 1)
Quarter: 2019Q1

REPORT INFORMATION
  Report Type: Spontaneous
  Country: CA (occurrence: CA)
  Receive Date: 20190315
  Receipt Date: 20190315
  Transmission Date: 20190418
  Serious: Yes (Hospitalization, Other)
  Sender: FDA-Public Use
  Company Number: CA-PURDUE PHARMA-CAN-2019-0009770

PATIENT
  Sex: Male

DRUGS (3)
  1. OXYCODONE HYDROCHLORIDE. [Suspect]
     Active Substance: OXYCODONE HYDROCHLORIDE
     Indication: PAIN
     Dosage: 80 MG, BID
     Route: 048
  2. ALCOHOL. [Suspect]
     Active Substance: ALCOHOL
     Indication: ALCOHOL ABUSE
     Dosage: UNK
     Route: 065
  3. METHAMPHETAMINE [Suspect]
     Active Substance: METHAMPHETAMINE
     Indication: DRUG ABUSE
     Dosage: UNK
     Route: 065

REACTIONS (11)
  - Type 1 diabetes mellitus [Unknown]
  - Loss of employment [Unknown]
  - Substance abuse [Unknown]
  - Hospitalisation [Unknown]
  - Drug dependence [Unknown]
  - Pancreatic disorder [Unknown]
  - Drug tolerance [Unknown]
  - Crime [Unknown]
  - Family stress [Unknown]
  - Impaired work ability [Unknown]
  - Self esteem decreased [Unknown]
